FAERS Safety Report 4551657-6 (Version None)
Quarter: 2005Q1

REPORT INFORMATION
  Report Type: 
  Country: None (occurrence: None)
  Receive Date: 20050111
  Receipt Date: 20041230
  Transmission Date: 20050727
  Serious: Yes (Other)
  Sender: FDA-Public Use
  Company Number: 2005000669

PATIENT
  Age: 51 Year
  Sex: Female
  Weight: 73.4827 kg

DRUGS (6)
  1. DETROL LA [Suspect]
     Indication: POLLAKIURIA
     Dosage: SEE IMAGE
     Route: 048
     Dates: start: 20040509, end: 20040111
  2. DETROL LA [Suspect]
     Indication: POLLAKIURIA
     Dosage: SEE IMAGE
     Route: 048
     Dates: start: 20041107
  3. METOPROLOL TARTRATE [Concomitant]
  4. CLONAZEPAM [Concomitant]
  5. VICODIN [Concomitant]
  6. CONJUGATED ESTROGENS [Concomitant]

REACTIONS (9)
  - ABDOMINAL DISCOMFORT [None]
  - ABDOMINAL PAIN UPPER [None]
  - BLADDER DISORDER [None]
  - PLEURISY [None]
  - POLLAKIURIA [None]
  - SENSATION OF PRESSURE [None]
  - TREATMENT NONCOMPLIANCE [None]
  - URINE FLOW DECREASED [None]
  - VAGINAL DISCHARGE [None]
